FAERS Safety Report 4727338-2 (Version None)
Quarter: 2005Q3

REPORT INFORMATION
  Report Type: 
  Country: None (occurrence: None)
  Receive Date: 20050727
  Receipt Date: 20050727
  Transmission Date: 20060218
  Serious: Yes (Hospitalization)
  Sender: FDA-Public Use
  Company Number: None

PATIENT
  Age: 75 Year
  Sex: Female
  Weight: 86.1834 kg

DRUGS (18)
  1. HEPARIN [Suspect]
     Dosage: 100 UNITS/ML Q 8 H + PRN
     Dates: start: 20050413, end: 20050504
  2. ENOXAPARIN SODIUM [Suspect]
     Indication: THROMBOSIS PROPHYLAXIS
     Dosage: 30 MG SQ DAILY
     Route: 058
     Dates: start: 20050413, end: 20050416
  3. LEVAQUIN [Concomitant]
  4. FLAGYL [Concomitant]
  5. ASPIRIN [Concomitant]
  6. COUMADIN [Concomitant]
  7. AVANDIA [Concomitant]
  8. LANTUS [Concomitant]
  9. DERMADEX [Concomitant]
  10. CLONIDINE [Concomitant]
  11. NORVASC [Concomitant]
  12. LEVOTHYROXINE [Concomitant]
  13. ALLOPURINOL [Concomitant]
  14. DOCUSATE [Concomitant]
  15. GUAIFENSIN [Concomitant]
  16. DILAUDID [Concomitant]
  17. PHENERGAN [Concomitant]
  18. FENOLDOPAM [Concomitant]

REACTIONS (3)
  - ABDOMINAL SEPSIS [None]
  - DIVERTICULAR PERFORATION [None]
  - THROMBOCYTOPENIA [None]
